FAERS Safety Report 5799636-5 (Version None)
Quarter: 2008Q3

REPORT INFORMATION
  Report Type: 
  Country: None (occurrence: None)
  Receive Date: 20080703
  Receipt Date: 20080627
  Transmission Date: 20090109
  Serious: Yes (Hospitalization, Other)
  Sender: FDA-Public Use
  Company Number: IE-ABBOTT-07P-229-0355739-00

PATIENT
  Sex: Female
  Weight: 60 kg

DRUGS (11)
  1. KLARICID [Suspect]
     Indication: PNEUMONIA
     Route: 042
     Dates: start: 20070111, end: 20070111
  2. KLARICID [Suspect]
     Route: 048
     Dates: start: 20070108, end: 20070110
  3. KLARICID [Suspect]
     Route: 042
     Dates: start: 20070104, end: 20070108
  4. PIPERACILLIN AND TAZOBACTAM [Concomitant]
     Indication: PNEUMONIA
     Route: 042
     Dates: start: 20070104, end: 20070111
  5. VANCOMYCIN [Concomitant]
     Indication: PNEUMONIA
     Route: 042
     Dates: start: 20070104, end: 20070111
  6. LANSOPRAZOLE [Concomitant]
     Indication: PROPHYLAXIS AGAINST GASTROINTESTINAL ULCER
     Route: 048
     Dates: start: 20070104
  7. ASPIRIN SOLUBLE [Concomitant]
     Indication: CARDIOVASCULAR EVENT PROPHYLAXIS
     Route: 048
     Dates: start: 20070104
  8. RAMIPRIL [Concomitant]
     Indication: BLOOD PRESSURE INCREASED
     Route: 048
     Dates: start: 20070104, end: 20070112
  9. ATORVASTATIN [Concomitant]
     Indication: BLOOD CHOLESTEROL INCREASED
     Route: 048
     Dates: start: 20070104, end: 20070112
  10. BISOPROLOL FUMARATE [Concomitant]
     Indication: BLOOD PRESSURE INCREASED
     Route: 048
     Dates: start: 20070104, end: 20070112
  11. ENOXAPARIN SODIUM [Concomitant]
     Indication: THROMBOSIS PROPHYLAXIS
     Route: 058
     Dates: start: 20070105, end: 20070111

REACTIONS (6)
  - BLOOD CREATINE INCREASED [None]
  - CARDIAC ARREST [None]
  - ELECTROCARDIOGRAM QT PROLONGED [None]
  - INCORRECT DOSE ADMINISTERED [None]
  - TORSADE DE POINTES [None]
  - VENTRICULAR FIBRILLATION [None]
